FAERS Safety Report 6188528-8 (Version None)
Quarter: 2009Q2

REPORT INFORMATION
  Report Type: 
  Country: None (occurrence: None)
  Receive Date: 20090513
  Receipt Date: 20090512
  Transmission Date: 20091009
  Serious: Yes (Other)
  Sender: FDA-Public Use
  Company Number: US-PFIZER INC-2009192481

PATIENT
  Age: 69 Year
  Sex: Female

DRUGS (3)
  1. CELEBREX [Suspect]
     Indication: ARTHRITIS
  2. LYRICA [Suspect]
  3. ADVIL [Suspect]

REACTIONS (4)
  - BALANCE DISORDER [None]
  - BLOOD PRESSURE INCREASED [None]
  - MOBILITY DECREASED [None]
  - SPEECH DISORDER [None]
